FAERS Safety Report 24681475 (Version 4)
Quarter: 2024Q4

REPORT INFORMATION
  Report Type: Report from Study
  Country: KR (occurrence: KR)
  Receive Date: 20241130
  Receipt Date: 20241223
  Transmission Date: 20250115
  Serious: Yes (Other)
  Sender: ABBVIE
  Company Number: KR-ABBVIE-6016955

PATIENT
  Age: 46 Year
  Sex: Female
  Weight: 61 kg

DRUGS (9)
  1. SKYRIZI [Suspect]
     Active Substance: RISANKIZUMAB-RZAA
     Indication: Psoriasis
     Dosage: FREQUENCY : ONCE
     Route: 058
     Dates: start: 20240717
  2. RIFAMPIN [Concomitant]
     Active Substance: RIFAMPIN
     Indication: Latent tuberculosis
     Route: 048
     Dates: start: 20241114
  3. Sinil pyridoxine [Concomitant]
     Indication: Latent tuberculosis
     Route: 048
     Dates: start: 20240927, end: 20241010
  4. Sinil pyridoxine [Concomitant]
     Indication: Latent tuberculosis
     Route: 048
     Dates: start: 20240627, end: 20240911
  5. BETAMETHASONE DIPROPIONATE\CALCIPOTRIENE HYDRATE [Concomitant]
     Active Substance: BETAMETHASONE DIPROPIONATE\CALCIPOTRIENE HYDRATE
     Indication: Psoriasis
     Dosage: TIME INTERVAL: AS NECESSARY: UNIT DOSE : UKG
     Route: 061
     Dates: start: 20230426, end: 202409
  6. ESPERSON [Concomitant]
     Indication: Psoriasis
     Dosage: TIME INTERVAL: AS NECESSARY: UNIT DOSE : UK ML?LOTION 0.25%
     Route: 061
     Dates: start: 20221215, end: 202409
  7. ISONIAZID [Suspect]
     Active Substance: ISONIAZID
     Indication: Latent tuberculosis
     Dosage: FORM STRENGTH 100MG
     Route: 048
     Dates: start: 20240927, end: 20241010
  8. ISONIAZID [Suspect]
     Active Substance: ISONIAZID
     Indication: Latent tuberculosis
     Dosage: FORM STRENGTH 100MG
     Route: 048
     Dates: start: 20240627, end: 20240911
  9. SYNTHROID [Concomitant]
     Active Substance: LEVOTHYROXINE SODIUM
     Indication: Thyroidectomy
     Route: 048
     Dates: start: 202405

REACTIONS (1)
  - Drug-induced liver injury [Recovered/Resolved]

NARRATIVE: CASE EVENT DATE: 20240911
